FAERS Safety Report 10380973 (Version 1)
Quarter: 2014Q1

REPORT INFORMATION
  Report Type: Spontaneous
  Country: US (occurrence: None)
  Receive Date: 20140306
  Receipt Date: 20140306
  Transmission Date: 20141002
  Serious: Yes (Hospitalization, Other)
  Sender: FDA-Public Use
  Company Number: 163-21880-13020431

PATIENT
  Age: 68 Year
  Sex: Male
  Weight: 66.68 kg

DRUGS (6)
  1. REVLIMID (LENALIDOMIDE) (2.5 MILLIGRAM, CAPSULES) [Suspect]
     Indication: MYELODYSPLASTIC SYNDROME
     Dosage: 2.5 MG, 21 IN 21 D, PO PERMANENTLY DISCONTINUED
     Route: 048
     Dates: start: 20121130
  2. VASOTEC (ENALAPRIL MALEATE) [Concomitant]
  3. EXJADE (DEFERASIROX) [Concomitant]
  4. FLOMAX (TAMSULOSIN HYDROCHLORIDE) [Concomitant]
  5. CYANOCOBALAMIN [Concomitant]
  6. ASPIRIN (ACETYLSALICYLIC ACID) [Concomitant]

REACTIONS (15)
  - Haemoglobin decreased [None]
  - Hypertension [None]
  - Haemoglobin increased [None]
  - Biopsy bone marrow abnormal [None]
  - Nuchal rigidity [None]
  - Disturbance in attention [None]
  - Poor quality sleep [None]
  - Dry skin [None]
  - Headache [None]
  - Decreased appetite [None]
  - Dysphagia [None]
  - Tremor [None]
  - Muscular weakness [None]
  - Lethargy [None]
  - Adverse drug reaction [None]
